FAERS Safety Report 8017839-6 (Version None)
Quarter: 2011Q4

REPORT INFORMATION
  Report Type: 
  Country: None (occurrence: None)
  Receive Date: 20111229
  Receipt Date: 20111229
  Transmission Date: 20120403
  Serious: Yes (Hospitalization)
  Sender: FDA-Public Use
  Company Number: None

PATIENT
  Age: 80 Year
  Sex: Male
  Weight: 102.7 kg

DRUGS (1)
  1. AMIODARONE HCL [Suspect]
     Dosage: 200 MG TID PO
     Route: 048
     Dates: start: 20111018, end: 20111024

REACTIONS (1)
  - DYSPNOEA [None]
